FAERS Safety Report 9600966 (Version 2)
Quarter: 2013Q4

REPORT INFORMATION
  Report Type: Spontaneous
  Country: US (occurrence: US)
  Receive Date: 20131004
  Receipt Date: 20131004
  Transmission Date: 20140711
  Serious: No
  Sender: FDA-Public Use
  Company Number: US-AMGEN-USASP2013035134

PATIENT
  Age: 33 Year
  Sex: Male

DRUGS (3)
  1. ENBREL [Suspect]
     Indication: PSORIATIC ARTHROPATHY
     Dosage: 50 MG, QWK
     Route: 058
  2. KLONOPIN [Concomitant]
     Dosage: 1 MG, UNK
  3. PRISTIQ [Concomitant]
     Dosage: 50 MG, UNK

REACTIONS (3)
  - Arthralgia [Unknown]
  - Joint swelling [Unknown]
  - Local swelling [Unknown]
